FAERS Safety Report 8250084-8 (Version None)
Quarter: 2012Q1

REPORT INFORMATION
  Report Type: 
  Country: None (occurrence: None)
  Receive Date: 20120328
  Receipt Date: 20120316
  Transmission Date: 20120608
  Serious: Yes (Hospitalization)
  Sender: FDA-Public Use
  Company Number: WAES 1108USA01064

PATIENT
  Age: 65 Year
  Sex: Male

DRUGS (6)
  1. ASPIRIN [Concomitant]
  2. ZOCOR [Suspect]
     Indication: PRODUCT USED FOR UNKNOWN INDICATION
     Dosage: PO
     Route: 048
     Dates: end: 20110723
  3. METFORMIN HCL [Suspect]
     Indication: DIABETES MELLITUS
     Dosage: 2000 MG/UNK
  4. STATIN [Concomitant]
  5. BLINDED THERAPY [Suspect]
     Indication: PRODUCT USED FOR UNKNOWN INDICATION
     Dosage: UNK
     Dates: start: 20110216, end: 20110717
  6. GLIPIZIDE [Suspect]
     Indication: DIABETES MELLITUS
     Dosage: 5 MG

REACTIONS (6)
  - WEIGHT DECREASED [None]
  - BLOOD CREATINE PHOSPHOKINASE INCREASED [None]
  - MUSCULAR WEAKNESS [None]
  - ALANINE AMINOTRANSFERASE INCREASED [None]
  - ASPARTATE AMINOTRANSFERASE INCREASED [None]
  - POLYMYOSITIS [None]
